FAERS Safety Report 6027188-3 (Version None)
Quarter: 2009Q1

REPORT INFORMATION
  Report Type: 
  Country: None (occurrence: None)
  Receive Date: 20090105
  Receipt Date: 20081226
  Transmission Date: 20090719
  Serious: Yes (Other)
  Sender: FDA-Public Use
  Company Number: US-AVENTIS-200818689US

PATIENT
  Sex: Male
  Weight: 84.09 kg

DRUGS (6)
  1. LANTUS [Suspect]
     Route: 058
     Dates: start: 20060101
  2. OPTICLIK (INSULIN INJECTION PEN) [Suspect]
     Dates: start: 20060101
  3. NOVOLOG [Suspect]
     Dosage: DOSE: SLIDING SCALE
  4. DIURETICS [Concomitant]
     Dosage: DOSE: UNK
  5. CARDIOVASCULAR SYSTEM DRUGS [Concomitant]
     Dosage: DOSE: UNK
  6. CARDIOVASCULAR SYSTEM DRUGS [Concomitant]
     Dosage: DOSE: UNK

REACTIONS (1)
  - HYPOGLYCAEMIA [None]
